FAERS Safety Report 18577476 (Version 3)
Quarter: 2020Q4

REPORT INFORMATION
  Report Type: Spontaneous
  Country: IL (occurrence: IL)
  Receive Date: 20201203
  Receipt Date: 20201216
  Transmission Date: 20210114
  Serious: Yes (Other)
  Sender: FDA-Public Use
  Company Number: IL-AMGEN-ISRSP2020196619

PATIENT
  Age: 73 Year
  Sex: Male
  Weight: 66 kg

DRUGS (7)
  1. PLAVIX [Concomitant]
     Active Substance: CLOPIDOGREL BISULFATE
     Dosage: UNK
     Dates: start: 2008
  2. CRESTOR [Concomitant]
     Active Substance: ROSUVASTATIN CALCIUM
     Indication: BLOOD CHOLESTEROL ABNORMAL
     Dosage: UNK
  3. ENBREL [Suspect]
     Active Substance: ETANERCEPT
     Indication: PSORIASIS
     Dosage: UNK
     Route: 065
     Dates: start: 2005, end: 20201111
  4. CANDOR [Concomitant]
     Dosage: 8 MILLIGRAM
  5. GLUCOMIN [Concomitant]
     Active Substance: METFORMIN HYDROCHLORIDE
     Indication: PROPHYLAXIS
     Dosage: UNK
     Dates: start: 2019
  6. OMNIC [Concomitant]
     Active Substance: TAMSULOSIN HYDROCHLORIDE
     Indication: PROSTATIC DISORDER
     Dosage: UNK
  7. BONDORMIN [Concomitant]
     Active Substance: BROTIZOLAM
     Indication: SLEEP DISORDER
     Dosage: 1 DOSAGE FORM

REACTIONS (9)
  - Weight decreased [Unknown]
  - General physical health deterioration [Unknown]
  - Psoriatic arthropathy [Unknown]
  - Treatment failure [Unknown]
  - Diarrhoea [Recovering/Resolving]
  - Diverticulitis [Recovered/Resolved]
  - Pain [Recovered/Resolved]
  - Urinary tract infection [Recovered/Resolved]
  - Diarrhoea [Recovering/Resolving]

NARRATIVE: CASE EVENT DATE: 20170824
